FAERS Safety Report 22251282 (Version 1)
Quarter: 2023Q2

REPORT INFORMATION
  Report Type: Spontaneous
  Country: US (occurrence: US)
  Receive Date: 20230425
  Receipt Date: 20230425
  Transmission Date: 20230721
  Serious: Yes (Hospitalization)
  Sender: FDA-Public Use
  Company Number: US-SPECGX-T202301049

PATIENT
  Age: 57 Year
  Sex: Male

DRUGS (4)
  1. METHADONE [Interacting]
     Active Substance: METHADONE HYDROCHLORIDE
     Indication: Oral pain
     Dosage: 5 MILLIGRAM, TID
     Route: 048
  2. ACETAMINOPHEN\HYDROCODONE [Suspect]
     Active Substance: ACETAMINOPHEN\HYDROCODONE
     Indication: Oral pain
     Dosage: 10/325 MG EVERY 4 HOURS AS NEEDED
     Route: 048
  3. GABAPENTIN [Suspect]
     Active Substance: GABAPENTIN
     Indication: Oral pain
     Dosage: 100 MILLIGRAM, TID
     Route: 048
  4. FLUCONAZOLE [Interacting]
     Active Substance: FLUCONAZOLE
     Indication: Candida infection
     Dosage: UNK
     Route: 065

REACTIONS (6)
  - Neurotoxicity [Unknown]
  - Myoclonus [Recovering/Resolving]
  - Insomnia [Unknown]
  - Hallucination [Recovering/Resolving]
  - Toxicity to various agents [Unknown]
  - Drug interaction [Unknown]
